FAERS Safety Report 24778276 (Version 1)
Quarter: 2024Q4

REPORT INFORMATION
  Report Type: Spontaneous
  Country: FR (occurrence: FR)
  Receive Date: 20241226
  Receipt Date: 20241226
  Transmission Date: 20250114
  Serious: Yes (Other)
  Sender: VIIV
  Company Number: None

PATIENT

DRUGS (15)
  1. TRIUMEQ [Suspect]
     Active Substance: ABACAVIR SULFATE\DOLUTEGRAVIR SODIUM\LAMIVUDINE
     Indication: HIV infection
     Dosage: 1 DF, QD (50 MG/600 MG/300 MG)
     Route: 048
     Dates: start: 20230113
  2. ATOVAQUONE [Suspect]
     Active Substance: ATOVAQUONE
     Indication: Toxoplasmosis
     Dosage: 1 DF, BID (750 MG/5 ML)
     Route: 048
     Dates: start: 20221229, end: 20230505
  3. AMBISOME [Suspect]
     Active Substance: AMPHOTERICIN B
     Indication: Fungal infection
     Dosage: 3 MG/KG, QD
     Route: 042
     Dates: start: 20221226
  4. AMBISOME [Suspect]
     Active Substance: AMPHOTERICIN B
     Dosage: 3 MG/KG, QD
     Route: 042
     Dates: start: 20230228, end: 20230310
  5. AMBISOME [Suspect]
     Active Substance: AMPHOTERICIN B
     Dosage: 3 MG/KG, QD
     Route: 042
     Dates: start: 20230321, end: 20230427
  6. VALGANCICLOVIR [Suspect]
     Active Substance: VALGANCICLOVIR
     Indication: Cytomegalovirus infection
     Dosage: UNK (ATTACK DOSE)
     Route: 048
     Dates: start: 20230106, end: 20230123
  7. VALGANCICLOVIR [Suspect]
     Active Substance: VALGANCICLOVIR
     Dosage: 900 MG, QD
     Route: 048
     Dates: start: 20230123, end: 20230320
  8. VALGANCICLOVIR [Suspect]
     Active Substance: VALGANCICLOVIR
     Dosage: 900 MG, BID
     Route: 048
     Dates: start: 20230419, end: 20230510
  9. VALGANCICLOVIR [Suspect]
     Active Substance: VALGANCICLOVIR
     Dosage: 900 MG, QD
     Route: 048
     Dates: start: 20230511
  10. LAMPRENE [Concomitant]
     Active Substance: CLOFAZIMINE
     Indication: Atypical mycobacterial infection
     Dosage: 1 DF, QD
     Route: 048
     Dates: start: 20230315
  11. MYAMBUTOL [Concomitant]
     Active Substance: ETHAMBUTOL HYDROCHLORIDE
     Indication: Atypical mycobacterial infection
     Dosage: 2 DF, QD
     Route: 048
  12. LEUCOVORIN CALCIUM [Concomitant]
     Active Substance: LEUCOVORIN CALCIUM
     Indication: Toxoplasmosis
     Dosage: 3 DF, WE
     Route: 048
  13. LEVOTHYROXINE [Concomitant]
     Active Substance: LEVOTHYROXINE
     Indication: Thyroid disorder
     Dosage: 1 DF, QD
     Route: 048
     Dates: start: 20230314
  14. ENOXAPARIN SODIUM [Concomitant]
     Active Substance: ENOXAPARIN SODIUM
     Indication: Product used for unknown indication
     Dosage: 4000 IU, QD
     Route: 065
     Dates: end: 20230602
  15. PREDNISONE [Concomitant]
     Active Substance: PREDNISONE
     Indication: Product used for unknown indication
     Dosage: 40 MG, QD
     Route: 048
     Dates: end: 20230602

REACTIONS (1)
  - Metabolic acidosis [Not Recovered/Not Resolved]

NARRATIVE: CASE EVENT DATE: 20230206
